FAERS Safety Report 21401145 (Version 1)
Quarter: 2022Q4

REPORT INFORMATION
  Report Type: Spontaneous
  Country: US (occurrence: US)
  Receive Date: 20221003
  Receipt Date: 20221003
  Transmission Date: 20230113
  Serious: Yes (Hospitalization, Other)
  Sender: FDA-Public Use
  Company Number: US-IPCA LABORATORIES LIMITED-IPC-2022-US-001642

PATIENT

DRUGS (2)
  1. WARFARIN [Suspect]
     Active Substance: WARFARIN
     Indication: Product used for unknown indication
     Dosage: 900 MILLIGRAM (180 TABLETS OF 5 MG)
     Route: 048
  2. WARFARIN [Suspect]
     Active Substance: WARFARIN
     Dosage: 100 MILLIGRAM (100 TABLETS OF 1 MG)
     Route: 048

REACTIONS (5)
  - International normalised ratio increased [Recovering/Resolving]
  - Headache [Recovering/Resolving]
  - Suicide attempt [Unknown]
  - Intentional overdose [Unknown]
  - Prescription drug used without a prescription [Unknown]
